FAERS Safety Report 8118101-3 (Version None)
Quarter: 2012Q1

REPORT INFORMATION
  Report Type: 
  Country: None (occurrence: None)
  Receive Date: 20120207
  Receipt Date: 20120201
  Transmission Date: 20120608
  Serious: No
  Sender: FDA-Public Use
  Company Number: US-PFIZER INC-2012028241

PATIENT
  Sex: Female
  Weight: 50.794 kg

DRUGS (4)
  1. LYRICA [Suspect]
     Dosage: 50 MG, 2X/DAY
     Route: 048
     Dates: start: 20110101
  2. LYRICA [Suspect]
     Indication: CONVULSION
     Dosage: 50 MG, 2X/DAY
     Route: 048
     Dates: start: 20110801, end: 20110920
  3. MYSOLINE [Concomitant]
     Dosage: UNK
  4. LYRICA [Suspect]
     Dosage: 75 MG, 2X/DAY
     Route: 048
     Dates: start: 20110921, end: 20110101

REACTIONS (4)
  - TONGUE ULCERATION [None]
  - MOUTH ULCERATION [None]
  - BLISTER [None]
  - GLOSSODYNIA [None]
